FAERS Safety Report 9092018 (Version 1)
Quarter: 2013Q1

REPORT INFORMATION
  Report Type: Report from Study
  Country: US (occurrence: US)
  Receive Date: 20130131
  Receipt Date: 20130131
  Transmission Date: 20140127
  Serious: No
  Sender: FDA-Public Use
  Company Number: US-ABBOTT-12P-163-0992840-00

PATIENT
  Age: 45 Year
  Sex: Male

DRUGS (8)
  1. HUMIRA [Suspect]
     Indication: CROHN^S DISEASE
     Dates: start: 20120705
  2. HYDROCODONE [Concomitant]
     Indication: PAIN
     Dosage: EVERY 12 HOURS
  3. CLONAZEPAM [Concomitant]
     Indication: ANXIETY
  4. LISINOPRIL [Concomitant]
     Indication: BLOOD PRESSURE
     Dosage: DAILY
  5. ATENOLOL [Concomitant]
     Indication: BLOOD PRESSURE
     Dosage: DAILY
  6. CITOLPARAM [Concomitant]
     Indication: DEPRESSION
     Dosage: DAILY
  7. ONDANSETRON [Concomitant]
     Indication: NAUSEA
  8. DONNATAL [Concomitant]
     Indication: ABDOMINAL PAIN UPPER

REACTIONS (3)
  - Poor quality drug administered [Unknown]
  - Drug ineffective [Not Recovered/Not Resolved]
  - Pain [Unknown]
